FAERS Safety Report 7478775-7 (Version None)
Quarter: 2011Q2

REPORT INFORMATION
  Report Type: 
  Country: None (occurrence: None)
  Receive Date: 20110513
  Receipt Date: 20110505
  Transmission Date: 20111010
  Serious: Yes (Other)
  Sender: FDA-Public Use
  Company Number: US-SANOFI-AVENTIS-2011SA013035

PATIENT
  Age: 37 Year
  Sex: Male
  Weight: 136 kg

DRUGS (6)
  1. ALL OTHER THERAPEUTIC PRODUCTS [Concomitant]
  2. NEXIUM [Concomitant]
     Route: 065
     Dates: start: 20080101
  3. SYNTHROID [Concomitant]
     Indication: HYPOTHYROIDISM
     Dates: start: 19800101
  4. LANTUS [Suspect]
     Indication: TYPE 2 DIABETES MELLITUS
     Dosage: DOSE:75 UNIT(S)
     Route: 058
     Dates: start: 20100801
  5. GLUCOPHAGE [Concomitant]
     Route: 065
     Dates: start: 20000101
  6. LANTUS [Suspect]
     Indication: TYPE 2 DIABETES MELLITUS
     Dates: start: 20100801

REACTIONS (2)
  - HERNIA [None]
  - INJECTION SITE HAEMORRHAGE [None]
